FAERS Safety Report 8266258-6 (Version None)
Quarter: 2012Q2

REPORT INFORMATION
  Report Type: 
  Country: None (occurrence: None)
  Receive Date: 20120406
  Receipt Date: 20120329
  Transmission Date: 20120825
  Serious: Yes (Hospitalization, Other)
  Sender: FDA-Public Use
  Company Number: FR-ABBOTT-11P-056-0869711-00

PATIENT
  Sex: Female

DRUGS (4)
  1. HUMIRA [Suspect]
     Indication: CROHN'S DISEASE
     Dosage: IN TOTAL 3 INJECTIONS
     Route: 058
     Dates: start: 20110805
  2. HUMIRA [Suspect]
     Indication: RHEUMATOID ARTHRITIS
     Route: 058
     Dates: start: 20080101, end: 20110101
  3. PREDNISONE TAB [Suspect]
     Indication: RHEUMATOID ARTHRITIS
     Route: 048
  4. ENBREL [Concomitant]
     Indication: RHEUMATOID ARTHRITIS
     Dosage: STOPPED FOR INTOLERANCE AND UNEFFICACY
     Route: 058
     Dates: start: 20110527, end: 20110701

REACTIONS (13)
  - AMYOTROPHY [None]
  - MUSCULOSKELETAL DISORDER [None]
  - GASTROINTESTINAL DISORDER [None]
  - EOSINOPHILIA [None]
  - ARTHRITIS [None]
  - DISSEMINATED TUBERCULOSIS [None]
  - RASH ERYTHEMATOUS [None]
  - PRURIGO [None]
  - ARTHRALGIA [None]
  - ANAEMIA [None]
  - PRODUCTIVE COUGH [None]
  - PYREXIA [None]
  - BREATH SOUNDS ABNORMAL [None]
